FAERS Safety Report 5714321-3 (Version None)
Quarter: 2008Q2

REPORT INFORMATION
  Report Type: 
  Country: None (occurrence: None)
  Receive Date: 20080421
  Receipt Date: 20080414
  Transmission Date: 20081010
  Serious: Yes (Hospitalization)
  Sender: FDA-Public Use
  Company Number: 2008SP006933

PATIENT
  Age: 48 Year
  Sex: Female

DRUGS (9)
  1. BETAMETHASONE [Suspect]
     Indication: RASH
     Dosage: 4 MG; QD; PO
     Route: 048
     Dates: start: 20070516, end: 20070520
  2. AERIUS (DESLORATADINE) (DESLORATADTNE) [Suspect]
     Indication: RASH
     Dosage: 5 MG;QD;PO
     Route: 048
     Dates: start: 20070516, end: 20070520
  3. MONOZECLAR (CLARITHROMYCIN) [Suspect]
     Indication: PHARYNGOLARYNGEAL PAIN
     Dosage: 500  MG; QD; PO
     Route: 048
     Dates: start: 20070502, end: 20070506
  4. KETOPROFEN [Suspect]
     Indication: INFLUENZA
     Dosage: 2 DF; QD; PO
     Route: 048
     Dates: start: 20070502, end: 20070507
  5. IXPRIM (ULTRACET) [Suspect]
     Indication: INFLUENZA
     Dosage: 3 DF; QD; PO
     Route: 048
     Dates: start: 20070502, end: 20070507
  6. ORBENIN CAP [Suspect]
     Indication: RASH
     Dosage: 2 GM; QD; PO
     Route: 048
     Dates: start: 20070516, end: 20070522
  7. VOLTAREN [Suspect]
     Indication: DRUG USE FOR UNKNOWN INDICATION
     Dosage: 150  MG; QD; PO
     Route: 048
     Dates: start: 20070609, end: 20070616
  8. PREDNISOLONE [Suspect]
     Indication: DRUG USE FOR UNKNOWN INDICATION
     Dosage: 20  MG; QD; PO
     Route: 048
     Dates: start: 20070529, end: 20070607
  9. PYOSTACINE (PRISTINAMYCIN) [Suspect]
     Indication: DRUG USE FOR UNKNOWN INDICATION
     Dosage: 2 DF; TID;  PO
     Route: 048
     Dates: start: 20070530, end: 20070607

REACTIONS (19)
  - ARTHRALGIA [None]
  - DRUG HYPERSENSITIVITY [None]
  - EPSTEIN-BARR VIRUS INFECTION [None]
  - ERYTHEMA INFECTIOSUM [None]
  - INFLAMMATION [None]
  - LOCALISED OEDEMA [None]
  - MONOCYTE COUNT INCREASED [None]
  - NEUTROPHIL COUNT INCREASED [None]
  - OEDEMA PERIPHERAL [None]
  - PAIN [None]
  - PAPILLOMA VIRAL INFECTION [None]
  - PYREXIA [None]
  - RASH [None]
  - RASH MACULO-PAPULAR [None]
  - RASH PRURITIC [None]
  - SCAR [None]
  - SKIN LESION [None]
  - VIRAL INFECTION [None]
  - WHITE BLOOD CELL COUNT INCREASED [None]
